FAERS Safety Report 10244785 (Version 2)
Quarter: 2014Q2

REPORT INFORMATION
  Report Type: Spontaneous
  Country: US (occurrence: US)
  Receive Date: 20140618
  Receipt Date: 20140618
  Transmission Date: 20141212
  Serious: Yes (Hospitalization, Other)
  Sender: FDA-Public Use
  Company Number: US-ELI_LILLY_AND_COMPANY-US201404006810

PATIENT
  Age: 72 Year
  Sex: Male
  Weight: 90.25 kg

DRUGS (6)
  1. HUMULIN 30% REGULAR, 70% NPH [Suspect]
     Indication: TYPE 2 DIABETES MELLITUS
     Dosage: 10 U, BID
     Route: 058
     Dates: start: 2013
  2. HUMULIN 30% REGULAR, 70% NPH [Suspect]
     Dosage: 10 U, BID
     Route: 058
  3. HUMULIN 30% REGULAR, 70% NPH [Suspect]
     Dosage: 15 U, BID
     Route: 058
  4. HUMULIN NPH [Suspect]
     Indication: TYPE 2 DIABETES MELLITUS
     Dosage: 6 U, BID
     Route: 058
     Dates: start: 2013
  5. HUMULIN NPH [Suspect]
     Dosage: 6 U, BID
     Route: 058
  6. METFORMIN [Concomitant]
     Dosage: 10 MG, QD

REACTIONS (7)
  - Hypoglycaemic unconsciousness [Recovered/Resolved]
  - Head injury [Unknown]
  - Neck injury [Unknown]
  - Traumatic haematoma [Unknown]
  - Wrong drug administered [Recovered/Resolved]
  - Peripheral swelling [Unknown]
  - Blood glucose increased [Unknown]
